FAERS Safety Report 12299378 (Version 1)
Quarter: 2016Q2

REPORT INFORMATION
  Report Type: Spontaneous
  Country: US (occurrence: None)
  Receive Date: 20160422
  Receipt Date: 20160422
  Transmission Date: 20160815
  Serious: Yes (Disabling)
  Sender: FDA-Public Use
  Company Number: None

PATIENT
  Age: 32 Year
  Sex: Male
  Weight: 72.58 kg

DRUGS (1)
  1. CIPROFLOXACIN, 500 MG [Suspect]
     Active Substance: CIPROFLOXACIN
     Indication: INFECTION
     Dosage: 28 TABLET(S) TWICE A DAY TAKEN BY MOUTH
     Route: 048

REACTIONS (9)
  - Chest pain [None]
  - Neck pain [None]
  - Nervous system disorder [None]
  - Tendon pain [None]
  - Pain in extremity [None]
  - Back pain [None]
  - Muscle spasms [None]
  - Activities of daily living impaired [None]
  - Arthralgia [None]

NARRATIVE: CASE EVENT DATE: 20160118
